FAERS Safety Report 7618696-X (Version None)
Quarter: 2011Q3

REPORT INFORMATION
  Report Type: 
  Country: None (occurrence: None)
  Receive Date: 20110718
  Receipt Date: 20110708
  Transmission Date: 20111222
  Serious: Yes (Hospitalization)
  Sender: FDA-Public Use
  Company Number: NL-ABBOTT-11P-114-0720188-00

PATIENT
  Sex: Male
  Weight: 65 kg

DRUGS (3)
  1. BUDESONIDE SUSTAINED RELEASE [Concomitant]
     Indication: CROHN'S DISEASE
     Route: 048
     Dates: start: 20110407
  2. HUMIRA [Suspect]
     Indication: CROHN'S DISEASE
     Route: 058
     Dates: start: 20101228
  3. AZATHIOPRINE [Concomitant]
     Indication: CROHN'S DISEASE
     Route: 048
     Dates: start: 20100501

REACTIONS (4)
  - THROMBOSIS [None]
  - DRUG DOSE OMISSION [None]
  - MIGRAINE [None]
  - CROHN'S DISEASE [None]
